FAERS Safety Report 4529641-8 (Version None)
Quarter: 2004Q4

REPORT INFORMATION
  Report Type: 
  Country: None (occurrence: None)
  Receive Date: 20041214
  Receipt Date: 20041208
  Transmission Date: 20050328
  Serious: Yes (Hospitalization, Other)
  Sender: FDA-Public Use
  Company Number: OSCN-PR-0412S-0355

PATIENT
  Age: 61 Year
  Sex: Female

DRUGS (3)
  1. OMNISCAN [Suspect]
     Indication: PERIPHERAL VASCULAR DISORDER
     Dosage: 40 ML, SINGLE DOSE, I.V.
     Route: 042
     Dates: start: 20040909, end: 20040909
  2. EPOGEN [Concomitant]
  3. VIOXX [Concomitant]

REACTIONS (9)
  - DIFFICULTY IN WALKING [None]
  - DNA ANTIBODY POSITIVE [None]
  - LYMPHOEDEMA [None]
  - MUSCLE TIGHTNESS [None]
  - RED BLOOD CELL SEDIMENTATION RATE INCREASED [None]
  - RHEUMATOID FACTOR QUANTITATIVE INCREASED [None]
  - SKIN INDURATION [None]
  - SKIN TIGHTNESS [None]
  - VASCULITIC RASH [None]
